FAERS Safety Report 17413746 (Version 1)
Quarter: 2020Q1

REPORT INFORMATION
  Report Type: Spontaneous
  Country: US (occurrence: US)
  Receive Date: 20200130
  Receipt Date: 20200130
  Transmission Date: 20200409
  Serious: Yes (Life-Threatening)
  Sender: FDA-Public Use
  Company Number: None

PATIENT
  Age: 53 Year
  Sex: Male

DRUGS (2)
  1. MIDAZOLAM (MIDAZOLM HCL 1MG/ML INJ [Suspect]
     Active Substance: MIDAZOLAM HYDROCHLORIDE
     Dates: start: 20191021, end: 20191021
  2. FENTANYL (FENTANYL 10MCG/ML NACL 0.9% INJ, BAG, 100ML [Suspect]
     Active Substance: FENTANYL
     Indication: PAIN
     Dosage: ?          OTHER STRENGTH:10 UG/ML;?
     Dates: start: 20191021, end: 20191021

REACTIONS (2)
  - Bradycardia [None]
  - Hypotension [None]

NARRATIVE: CASE EVENT DATE: 20191021
